FAERS Safety Report 9737190 (Version 2)
Quarter: 2014Q1

REPORT INFORMATION
  Report Type: Report from Study
  Country: US (occurrence: US)
  Receive Date: 20131206
  Receipt Date: 20140327
  Transmission Date: 20141002
  Serious: Yes (Other)
  Sender: FDA-Public Use
  Company Number: US-ROCHE-1308883

PATIENT
  Sex: Female
  Weight: 42.91 kg

DRUGS (23)
  1. NUTROPIN AQ [Suspect]
     Indication: HYPOPITUITARISM
     Route: 058
  2. NASONEX [Concomitant]
  3. DHEA [Concomitant]
     Route: 048
  4. CYTOMEL [Concomitant]
     Route: 065
  5. CORTEF [Concomitant]
     Route: 048
  6. LEVOTHROID [Concomitant]
     Route: 048
  7. FISH OIL [Concomitant]
     Route: 048
  8. RECLAST [Concomitant]
     Dosage: 5 MG/100ML SOLUTION
     Route: 065
  9. PREVACID [Concomitant]
     Dosage: 5 MG/100ML SOLUTION
     Route: 065
  10. VOLTAREN [Concomitant]
     Route: 048
  11. VITAMIN D3 [Concomitant]
     Route: 048
  12. RETIN-A MICRO [Concomitant]
  13. TOPROL XL [Concomitant]
     Route: 048
  14. NITROGLYCERINE CREAM [Concomitant]
  15. ULTRAM [Concomitant]
  16. NORVASC [Concomitant]
     Route: 048
  17. PROMETRIUM [Concomitant]
     Route: 048
  18. CREON [Concomitant]
     Dosage: 24000 UNIT PER CAPSULE
     Route: 048
  19. ESTRACE [Concomitant]
     Route: 048
  20. DDAVP [Concomitant]
     Route: 048
  21. ALLEGRA [Concomitant]
     Route: 048
  22. PROVIGIL (UNITED STATES) [Concomitant]
     Route: 048
  23. FLORINEF [Concomitant]
     Route: 048

REACTIONS (11)
  - Peroneal nerve palsy [Unknown]
  - Neck pain [Unknown]
  - Diarrhoea [Unknown]
  - Constipation [Unknown]
  - Arthralgia [Unknown]
  - Micturition urgency [Unknown]
  - Myalgia [Unknown]
  - Dizziness [Unknown]
  - Asthenia [Unknown]
  - Muscle disorder [Unknown]
  - Thyroid disorder [Unknown]
